FAERS Safety Report 9351197 (Version 1)
Quarter: 2013Q2

REPORT INFORMATION
  Report Type: Spontaneous
  Country: US (occurrence: US)
  Receive Date: 20130617
  Receipt Date: 20130617
  Transmission Date: 20140414
  Serious: Yes (Other)
  Sender: FDA-Public Use
  Company Number: US-PFIZER INC-2013178509

PATIENT
  Age: 44 Year
  Sex: Female

DRUGS (6)
  1. CELEBREX [Suspect]
     Indication: ARTHRITIS
     Dosage: 200 MG,  TWO TIMES A DAY
     Route: 048
     Dates: start: 1984
  2. CELEBREX [Suspect]
     Indication: ARTHRALGIA
  3. ASPIRIN [Concomitant]
     Dosage: 81 MG
  4. DIOVANE [Concomitant]
     Dosage: 320 MG, ONCE A DAY
  5. PREDNISONE [Concomitant]
     Dosage: 5 MG, ONCE A DAY
  6. TYLENOL W/CODEINE NO. 3 [Concomitant]
     Dosage: 1 DF 300/30MG, AS NEEDED

REACTIONS (3)
  - Endotracheal intubation complication [Unknown]
  - Intervertebral disc protrusion [Unknown]
  - Oesophagitis [Unknown]
